FAERS Safety Report 12237681 (Version 1)
Quarter: 2016Q2

REPORT INFORMATION
  Report Type: Spontaneous
  Country: US (occurrence: US)
  Receive Date: 20160405
  Receipt Date: 20160405
  Transmission Date: 20160815
  Serious: No
  Sender: FDA-Public Use
  Company Number: US-WATSON-2015-12117

PATIENT
  Sex: Female

DRUGS (1)
  1. SORIATANE [Suspect]
     Active Substance: ACITRETIN
     Indication: KERATOSIS FOLLICULAR
     Dosage: 10 MG, UNKNOWN
     Route: 048
     Dates: start: 201207

REACTIONS (3)
  - Blood glucose decreased [Recovered/Resolved]
  - Inappropriate schedule of drug administration [Unknown]
  - Rash [Unknown]
